FAERS Safety Report 23994876 (Version 1)
Quarter: 2024Q2

REPORT INFORMATION
  Report Type: Spontaneous
  Country: US (occurrence: US)
  Receive Date: 20240620
  Receipt Date: 20240620
  Transmission Date: 20240716
  Serious: Yes (Other)
  Sender: FDA-Public Use
  Company Number: US-PFIZER INC-202400195027

PATIENT
  Age: 18 Year
  Sex: Female

DRUGS (1)
  1. MARCAINE WITH EPINEPHRINE [Suspect]
     Active Substance: BUPIVACAINE HYDROCHLORIDE\EPINEPHRINE BITARTRATE
     Dosage: UNK

REACTIONS (2)
  - Injection site ischaemia [Unknown]
  - Skin reaction [Unknown]
